FAERS Safety Report 13578404 (Version 1)
Quarter: 2017Q2

REPORT INFORMATION
  Report Type: Spontaneous
  Country: US (occurrence: US)
  Receive Date: 20170524
  Receipt Date: 20170524
  Transmission Date: 20170830
  Serious: Yes (Other)
  Sender: FDA-Public Use
  Company Number: US-BAYER-2017-092075

PATIENT
  Age: 39 Year
  Sex: Female

DRUGS (1)
  1. MIRENA [Suspect]
     Active Substance: LEVONORGESTREL
     Indication: CONTRACEPTION
     Dosage: 20 MCG/24HR, CONT
     Route: 015
     Dates: start: 20170303

REACTIONS (8)
  - Anaphylactic reaction [Recovered/Resolved]
  - Throat tightness [Recovered/Resolved]
  - Anaphylactic reaction [Recovered/Resolved]
  - Hypertension [None]
  - Urticaria [Recovered/Resolved]
  - Swelling [Recovered/Resolved]
  - Diarrhoea [Recovered/Resolved]
  - Gastric disorder [Recovered/Resolved]

NARRATIVE: CASE EVENT DATE: 2017
